FAERS Safety Report 23155874 (Version 3)
Quarter: 2025Q4

REPORT INFORMATION
  Report Type: Spontaneous
  Country: EU (occurrence: EU)
  Receive Date: 20231107
  Receipt Date: 20251107
  Transmission Date: 20260117
  Serious: Yes (Hospitalization, Other)
  Sender: SANDOZ
  Company Number: EU-002147023-NVSC2023PL233375

PATIENT
  Age: 63 Year
  Sex: Female

DRUGS (2)
  1. FULVESTRANT [Suspect]
     Active Substance: FULVESTRANT
     Indication: Product used for unknown indication
     Dosage: UNK
     Route: 065
  2. RIBOCICLIB [Suspect]
     Active Substance: RIBOCICLIB
     Indication: Breast cancer
     Dosage: 600 MG, QD (DAILY FOR 21 DAYS, THEN A BREAK OF 7 DAYS; 1 CYCLE LASTS 28 DAYS)
     Route: 065

REACTIONS (2)
  - Abdominal pain [Recovered/Resolved]
  - Electrocardiogram QT prolonged [Recovered/Resolved]
